FAERS Safety Report 23663068 (Version 1)
Quarter: 2024Q1

REPORT INFORMATION
  Report Type: Spontaneous
  Country: KR (occurrence: KR)
  Receive Date: 20240322
  Receipt Date: 20240322
  Transmission Date: 20240409
  Serious: Yes (Other)
  Sender: FDA-Public Use
  Company Number: KR-BEH-2024169809

PATIENT
  Age: 5 Year
  Sex: Male
  Weight: 18 kg

DRUGS (2)
  1. AFSTYLA ANTIHEMOPHILIC FACTOR (RECOMBINANT), SINGLE CHAIN [Suspect]
     Active Substance: ANTIHEMOPHILIC FACTOR, HUMAN RECOMBINANT
     Indication: Factor VIII deficiency
     Dosage: 30 INTERNATIONAL UNIT/KILOGRAM
     Route: 042
     Dates: start: 202401
  2. AFSTYLA ANTIHEMOPHILIC FACTOR (RECOMBINANT), SINGLE CHAIN [Suspect]
     Active Substance: ANTIHEMOPHILIC FACTOR, HUMAN RECOMBINANT
     Indication: Factor VIII deficiency
     Dosage: 30 INTERNATIONAL UNIT/KILOGRAM
     Route: 042
     Dates: start: 202401

REACTIONS (4)
  - Drug ineffective [Recovering/Resolving]
  - Contusion [Recovering/Resolving]
  - No adverse event [Unknown]
  - Product solubility abnormal [Unknown]
